FAERS Safety Report 7892865-6 (Version None)
Quarter: 2011Q4

REPORT INFORMATION
  Report Type: 
  Country: None (occurrence: None)
  Receive Date: 20111104
  Receipt Date: 20100816
  Transmission Date: 20120403
  Serious: No
  Sender: FDA-Public Use
  Company Number: US-BAYER-201030899NA

PATIENT
  Age: 80 Year
  Sex: Female

DRUGS (6)
  1. PREDNISONE [Suspect]
     Indication: DYSPNOEA
     Route: 065
     Dates: start: 20100301
  2. GUAIFENESIN [Suspect]
     Indication: PRODUCT USED FOR UNKNOWN INDICATION
     Route: 065
  3. OXYGEN [Concomitant]
  4. AVELOX [Suspect]
     Indication: DYSPNOEA
     Route: 065
  5. LANTUS [Suspect]
     Indication: INSULIN-REQUIRING TYPE 2 DIABETES MELLITUS
     Dosage: UNIT DOSE: 100IU/ML - DOSE 27 TO 30 UNITS - VIA OPTICLIK (LOT E059)
     Route: 058
     Dates: start: 20060101
  6. PROMETHAZINE [Suspect]
     Indication: PRODUCT USED FOR UNKNOWN INDICATION
     Route: 065

REACTIONS (2)
  - MALAISE [None]
  - BLOOD GLUCOSE INCREASED [None]
